FAERS Safety Report 20578324 (Version 1)
Quarter: 2022Q1

REPORT INFORMATION
  Report Type: Spontaneous
  Country: US (occurrence: US)
  Receive Date: 20220310
  Receipt Date: 20220310
  Transmission Date: 20220424
  Serious: No
  Sender: FDA-Public Use
  Company Number: US-BRISTOL-MYERS SQUIBB COMPANY-BMS-2022-034451

PATIENT
  Age: 43 Year
  Sex: Male

DRUGS (1)
  1. OPDIVO [Suspect]
     Active Substance: NIVOLUMAB
     Indication: Colon cancer
     Dosage: 240 MILLIGRAM, Q2WK
     Route: 065
     Dates: start: 20220228

REACTIONS (1)
  - Product preparation error [Unknown]

NARRATIVE: CASE EVENT DATE: 20220228
